FAERS Safety Report 9186187 (Version 1)
Quarter: 2013Q1

REPORT INFORMATION
  Report Type: Spontaneous
  Country: US (occurrence: None)
  Receive Date: 20130321
  Receipt Date: 20130321
  Transmission Date: 20140127
  Serious: Yes (Other)
  Sender: FDA-Public Use
  Company Number: CIO13014731

PATIENT
  Sex: Female

DRUGS (1)
  1. ZZZQULL NIGHTTIME SLEEP-AID [Suspect]
     Route: 048

REACTIONS (1)
  - Convulsion [None]
